FAERS Safety Report 5973851-X (Version None)
Quarter: 2008Q4

REPORT INFORMATION
  Report Type: 
  Country: None (occurrence: None)
  Receive Date: 20081201
  Receipt Date: 20081118
  Transmission Date: 20090506
  Serious: Yes (Hospitalization)
  Sender: FDA-Public Use
  Company Number: FR-ROCHE-598150

PATIENT
  Sex: Female

DRUGS (1)
  1. CAPECITABINE [Suspect]
     Dosage: CUMULATIVE DOSE: 75000 MG
     Route: 048
     Dates: start: 20070806, end: 20070907

REACTIONS (1)
  - ANAL ABSCESS [None]
